FAERS Safety Report 5837001-2 (Version None)
Quarter: 2008Q3

REPORT INFORMATION
  Report Type: 
  Country: None (occurrence: None)
  Receive Date: 20080731
  Receipt Date: 20080606
  Transmission Date: 20090109
  Serious: No
  Sender: FDA-Public Use
  Company Number: US200806001872

PATIENT
  Age: 63 Year
  Sex: Male

DRUGS (5)
  1. BYETTA [Suspect]
     Indication: TYPE 2 DIABETES MELLITUS
     Dosage: 5 UG, DAILY (1/D), ORAL; 5 UG, 2/D, SUBCUTANEOUS; 10UG, 2/D, SUBCUTANEOUS
     Route: 048
     Dates: start: 20070101, end: 20070101
  2. BYETTA [Suspect]
     Indication: TYPE 2 DIABETES MELLITUS
     Dosage: 5 UG, DAILY (1/D), ORAL; 5 UG, 2/D, SUBCUTANEOUS; 10UG, 2/D, SUBCUTANEOUS
     Route: 048
     Dates: start: 20070101, end: 20070101
  3. BYETTA [Suspect]
     Indication: TYPE 2 DIABETES MELLITUS
     Dosage: 5 UG, DAILY (1/D), ORAL; 5 UG, 2/D, SUBCUTANEOUS; 10UG, 2/D, SUBCUTANEOUS
     Route: 048
     Dates: start: 20070101
  4. GLIMEPIRIDE [Concomitant]
  5. METFORMIN HCL [Concomitant]

REACTIONS (2)
  - DRY SKIN [None]
  - INJECTION SITE IRRITATION [None]
